FAERS Safety Report 18417349 (Version 4)
Quarter: 2021Q1

REPORT INFORMATION
  Report Type: Spontaneous
  Country: US (occurrence: US)
  Receive Date: 20201022
  Receipt Date: 20210303
  Transmission Date: 20210419
  Serious: Yes (Hospitalization)
  Sender: FDA-Public Use
  Company Number: 2020SGN02303

PATIENT
  Sex: Female

DRUGS (3)
  1. CAPECITABINE. [Suspect]
     Active Substance: CAPECITABINE
     Indication: BREAST CANCER FEMALE
  2. TUKYSA [Suspect]
     Active Substance: TUCATINIB
     Indication: BREAST CANCER FEMALE
     Route: 048
  3. HERCEPTIN [Concomitant]
     Active Substance: TRASTUZUMAB
     Indication: BREAST CANCER FEMALE

REACTIONS (5)
  - White blood cell count decreased [Unknown]
  - Diarrhoea [Recovered/Resolved]
  - Hospitalisation [Unknown]
  - Incorrect dosage administered [Unknown]
  - Product dose omission issue [Unknown]
